FAERS Safety Report 9407682 (Version 2)
Quarter: 2013Q2

REPORT INFORMATION
  Report Type: Spontaneous
  Country: CN (occurrence: None)
  Receive Date: 20130405
  Receipt Date: 20130426
  Transmission Date: 20140414
  Serious: Yes (Other)
  Sender: FDA-Public Use
  Company Number: JP-2013-10847

PATIENT
  Age: 53 Year
  Sex: Male

DRUGS (2)
  1. OPC-13013 (CILOSTAZOL) TABLET [Suspect]
  2. PROBUCOL [Suspect]

REACTIONS (9)
  - Tachycardia paroxysmal [None]
  - Transient ischaemic attack [None]
  - Diarrhoea [None]
  - Gastroenteritis [None]
  - Memory impairment [None]
  - Eczema [None]
  - Palpitations [None]
  - Blood pressure increased [None]
  - Hypoaesthesia [None]
